FAERS Safety Report 7064055-0 (Version None)
Quarter: 2010Q4

REPORT INFORMATION
  Report Type: 
  Country: None (occurrence: None)
  Receive Date: 20101027
  Receipt Date: 20100113
  Transmission Date: 20110411
  Serious: Yes (Other)
  Sender: FDA-Public Use
  Company Number: US-ASTRAZENECA-2009UW10779

PATIENT
  Age: 15715 Day
  Sex: Male

DRUGS (7)
  1. SEROQUEL [Suspect]
     Dosage: 200 MG TO 300 MG
     Route: 048
     Dates: start: 20020130
  2. ATORVASTATIN [Concomitant]
     Dates: start: 20070912
  3. LISINOPRIL [Concomitant]
     Dates: start: 20070912
  4. TRAZODONE HCL [Concomitant]
     Dates: start: 20020812
  5. GLUCOPHAGE [Concomitant]
     Dosage: BID
     Dates: start: 20030509
  6. NIASPAN [Concomitant]
     Dates: start: 20030509
  7. EXEDRIN [Concomitant]
     Dates: start: 20030509

REACTIONS (3)
  - DIABETES MELLITUS INADEQUATE CONTROL [None]
  - NEUROPATHY PERIPHERAL [None]
  - TYPE 2 DIABETES MELLITUS [None]
